FAERS Safety Report 20186012 (Version 1)
Quarter: 2021Q4

REPORT INFORMATION
  Report Type: Spontaneous
  Country: US (occurrence: US)
  Receive Date: 20211215
  Receipt Date: 20211215
  Transmission Date: 20220303
  Serious: Yes (Hospitalization)
  Sender: FDA-Public Use
  Company Number: US-ORG100016242-2021000864

PATIENT

DRUGS (6)
  1. EXPAREL [Suspect]
     Active Substance: BUPIVACAINE
     Dosage: 20 CC OF LB MIXTURE WITH 40 CC OF 0.25% BUPIVACAINE AND 120CC OF NORMAL SALINE
     Route: 065
  2. BUPIVACAINE [Suspect]
     Active Substance: BUPIVACAINE
     Dosage: 20 CC OF LB MIXTURE WITH 40 CC OF 0.25% BUPIVACAINE AND 120CC OF NORMAL SALINE
     Route: 065
  3. SODIUM CHLORIDE [Concomitant]
     Active Substance: SODIUM CHLORIDE
     Dosage: 20 CC OF LB MIXTURE WITH 40 CC OF 0.25% BUPIVACAINE AND 120CC OF NORMAL SALINE
     Route: 065
  4. ACETAMINOPHEN [Concomitant]
     Active Substance: ACETAMINOPHEN
     Dosage: NOT PROVIDED
     Route: 065
  5. GABAPENTIN [Concomitant]
     Active Substance: GABAPENTIN
     Dosage: NOT PROVIDED
     Route: 065
  6. KETOROLAC [Concomitant]
     Active Substance: KETOROLAC TROMETHAMINE
     Dosage: NOT PROVIDED
     Route: 065

REACTIONS (1)
  - Hospitalisation [Unknown]
